FAERS Safety Report 13754552 (Version 3)
Quarter: 2017Q3

REPORT INFORMATION
  Report Type: Spontaneous
  Country: US (occurrence: US)
  Receive Date: 20170714
  Receipt Date: 20170906
  Transmission Date: 20171127
  Serious: Yes (Other)
  Sender: FDA-Public Use
  Company Number: US-PFIZER INC-2017304522

PATIENT
  Age: 42 Year
  Sex: Female

DRUGS (2)
  1. ESTRADIOL CIPIONATE [Suspect]
     Active Substance: ESTRADIOL CYPIONATE
     Indication: TRANSGENDER HORMONAL THERAPY
     Dosage: 6 MG, WEEKLY (FROM 5 YEARS)
  2. MEDROXYPROGESTERONE ACETATE. [Suspect]
     Active Substance: MEDROXYPROGESTERONE ACETATE
     Indication: TRANSGENDER HORMONAL THERAPY
     Dosage: 10 MG, DAILY (PAST 2 YEARS)

REACTIONS (3)
  - Arterial thrombosis [Unknown]
  - Product use in unapproved indication [Unknown]
  - Myocardial infarction [Unknown]

NARRATIVE: CASE EVENT DATE: 20160402
